FAERS Safety Report 13849309 (Version 1)
Quarter: 2017Q3

REPORT INFORMATION
  Report Type: Spontaneous
  Country: AU (occurrence: AU)
  Receive Date: 20170809
  Receipt Date: 20170809
  Transmission Date: 20171127
  Serious: Yes (Other)
  Sender: FDA-Public Use
  Company Number: AU-LUPIN PHARMACEUTICALS INC.-2016-04973

PATIENT
  Age: 28 Year
  Sex: Female

DRUGS (4)
  1. CLOBAZAM [Concomitant]
     Active Substance: CLOBAZAM
     Indication: EPILEPSY
     Dosage: UNK UNK,UNK,UNKNOWN
     Route: 065
  2. PHENYTOIN. [Concomitant]
     Active Substance: PHENYTOIN
     Indication: EPILEPSY
     Dosage: UNK UNK,UNK,UNKNOWN
     Route: 065
  3. VALPROIC ACID. [Concomitant]
     Active Substance: VALPROIC ACID
     Indication: EPILEPSY
     Dosage: UNK UNK,UNK,UNKNOWN
     Route: 065
  4. LEVETIRACETAM. [Suspect]
     Active Substance: LEVETIRACETAM
     Indication: EPILEPSY
     Dosage: UNK UNK,UNK,
     Route: 065

REACTIONS (1)
  - Psychotic disorder [Recovered/Resolved]
